FAERS Safety Report 21252671 (Version 1)
Quarter: 2022Q3

REPORT INFORMATION
  Report Type: Report from Study
  Country: CA (occurrence: CA)
  Receive Date: 20220825
  Receipt Date: 20220825
  Transmission Date: 20221027
  Serious: Yes (Other)
  Sender: FDA-Public Use
  Company Number: CA-NOVARTISPH-NVSC2022CA187887

PATIENT
  Sex: Female

DRUGS (1)
  1. HYRIMOZ [Suspect]
     Active Substance: ADALIMUMAB-ADAZ
     Indication: Crohn^s disease
     Dosage: 40 MG, Q2W (EVERY 2 WEEK )
     Route: 058
     Dates: start: 20220518

REACTIONS (8)
  - Bronchiolitis [Unknown]
  - Feeling abnormal [Unknown]
  - Micturition disorder [Recovering/Resolving]
  - Decreased appetite [Unknown]
  - Cough [Not Recovered/Not Resolved]
  - Productive cough [Unknown]
  - Nausea [Unknown]
  - Injection site haemorrhage [Unknown]
